FAERS Safety Report 8299569-9 (Version None)
Quarter: 2012Q2

REPORT INFORMATION
  Report Type: 
  Country: None (occurrence: None)
  Receive Date: 20120419
  Receipt Date: 20120412
  Transmission Date: 20120825
  Serious: Yes (Hospitalization)
  Sender: FDA-Public Use
  Company Number: US-GLAXOSMITHKLINE-A0794737A

PATIENT
  Age: 59 Year
  Sex: Female
  Weight: 72.7 kg

DRUGS (8)
  1. HYZAAR [Concomitant]
  2. SINGULAIR [Concomitant]
  3. ESTRATEST [Concomitant]
  4. PRECOSE [Concomitant]
  5. XANAX [Concomitant]
  6. NORVASC [Concomitant]
  7. NEXIUM [Concomitant]
  8. AVANDIA [Suspect]
     Indication: DIABETES MELLITUS
     Dosage: 8MG PER DAY
     Route: 048
     Dates: start: 20020208, end: 20061222

REACTIONS (7)
  - DYSPNOEA [None]
  - RESPIRATORY DISORDER [None]
  - CARDIAC TAMPONADE [None]
  - PALPITATIONS [None]
  - PERICARDIAL EFFUSION [None]
  - SWELLING [None]
  - VENTRICULAR TACHYCARDIA [None]
